FAERS Safety Report 8141827-2 (Version None)
Quarter: 2012Q1

REPORT INFORMATION
  Report Type: 
  Country: None (occurrence: None)
  Receive Date: 20120216
  Receipt Date: 20120206
  Transmission Date: 20120608
  Serious: Yes (Hospitalization, Other)
  Sender: FDA-Public Use
  Company Number: FR-ELI_LILLY_AND_COMPANY-FR201109000979

PATIENT
  Age: 31 Year
  Sex: Female
  Weight: 55 kg

DRUGS (7)
  1. BISOPROLOL FUMARATE [Concomitant]
     Dosage: 5 MG, QD
     Dates: start: 20110522
  2. EFFIENT [Suspect]
     Indication: ACUTE CORONARY SYNDROME
     Dosage: 60 MG, LOADING DOSE
     Route: 048
     Dates: start: 20110522, end: 20110522
  3. EFFIENT [Suspect]
     Dosage: 5 MG, UNKNOWN
     Route: 048
     Dates: start: 20110827, end: 20110901
  4. ASPIRIN [Concomitant]
     Dosage: 75 MG, UNKNOWN
  5. LEVOTHYROXINE SODIUM [Concomitant]
     Dosage: 75 UG, UNK
     Dates: start: 20080101
  6. ASPIRIN [Concomitant]
     Dosage: 75 MG, QD
     Route: 048
     Dates: start: 20110522
  7. EFFIENT [Suspect]
     Dosage: 10 MG, QD
     Route: 048
     Dates: start: 20110523, end: 20110826

REACTIONS (5)
  - OVARIAN CYST RUPTURED [None]
  - WRONG TECHNIQUE IN DRUG USAGE PROCESS [None]
  - OFF LABEL USE [None]
  - PERITONEAL HAEMORRHAGE [None]
  - OVERDOSE [None]
